FAERS Safety Report 21385965 (Version 1)
Quarter: 2022Q3

REPORT INFORMATION
  Report Type: Spontaneous
  Country: CA (occurrence: CA)
  Receive Date: 20220928
  Receipt Date: 20220928
  Transmission Date: 20221027
  Serious: Yes (Hospitalization, Other)
  Sender: FDA-Public Use
  Company Number: CA-NOVARTISPH-NVSC2022CA218110

PATIENT
  Age: 11 Year
  Sex: Female

DRUGS (6)
  1. CYCLOSPORINE [Suspect]
     Active Substance: CYCLOSPORINE
     Indication: Toxic epidermal necrolysis
     Dosage: UNK (THERAPY DURATION 3 DAYS)
     Route: 065
  2. CYCLOSPORINE [Suspect]
     Active Substance: CYCLOSPORINE
     Indication: Stevens-Johnson syndrome
     Dosage: UNK (THERAPY DURATION 3 DAYS)
     Route: 065
  3. CYCLOSPORINE [Suspect]
     Active Substance: CYCLOSPORINE
     Indication: Overlap syndrome
     Dosage: 5 MG/KG, QD (THERAPY DURATION) (1 EVERY 1 DAY)
     Route: 065
  4. SULFAMETHOXAZOLE AND TRIMETHOPRIM [Suspect]
     Active Substance: SULFAMETHOXAZOLE\TRIMETHOPRIM
     Indication: Postoperative wound infection
     Dosage: UNK
     Route: 048
  5. CIPROFLOXACIN [Concomitant]
     Active Substance: CIPROFLOXACIN
     Indication: Postoperative wound infection
     Dosage: UNK
     Route: 048
  6. MEROPENEM [Concomitant]
     Active Substance: MEROPENEM
     Indication: Postoperative wound infection
     Dosage: UNK
     Route: 042

REACTIONS (6)
  - Hypertension [Unknown]
  - Overlap syndrome [Unknown]
  - Posterior reversible encephalopathy syndrome [Unknown]
  - Seizure [Unknown]
  - Stevens-Johnson syndrome [Unknown]
  - Toxic epidermal necrolysis [Unknown]
